FAERS Safety Report 7704946-8 (Version None)
Quarter: 2011Q3

REPORT INFORMATION
  Report Type: 
  Country: None (occurrence: None)
  Receive Date: 20110823
  Receipt Date: 20110818
  Transmission Date: 20111222
  Serious: Yes (Other)
  Sender: FDA-Public Use
  Company Number: US-PFIZER INC-2011132563

PATIENT
  Sex: Female

DRUGS (5)
  1. CHANTIX [Suspect]
     Indication: SMOKING CESSATION THERAPY
     Dosage: 1 MG, UNK
     Dates: start: 20070520, end: 20080801
  2. AMLODIPINE BESILATE [Concomitant]
     Dosage: UNK
     Dates: start: 19950101
  3. EFFEXOR [Concomitant]
     Indication: DEPRESSION
     Dosage: UNK
     Dates: start: 20060101
  4. LEVOTHYROXINE [Concomitant]
     Indication: THYROID HORMONE REPLACEMENT THERAPY
     Dosage: UNK
  5. DIPHENHYDRAMINE [Concomitant]
     Indication: SLEEP DISORDER
     Dosage: UNK

REACTIONS (5)
  - ANXIETY [None]
  - LOSS OF CONSCIOUSNESS [None]
  - SUICIDAL BEHAVIOUR [None]
  - MENTAL DISORDER [None]
  - DEPRESSION [None]
